FAERS Safety Report 5056387-2 (Version None)
Quarter: 2006Q3

REPORT INFORMATION
  Report Type: 
  Country: None (occurrence: None)
  Receive Date: 20060720
  Receipt Date: 20060522
  Transmission Date: 20061208
  Serious: Yes (Hospitalization)
  Sender: FDA-Public Use
  Company Number: US-BRISTOL-MYERS SQUIBB COMPANY-13385554

PATIENT
  Age: 64 Year
  Sex: Female

DRUGS (4)
  1. ORENCIA [Suspect]
     Indication: RHEUMATOID ARTHRITIS
     Route: 042
     Dates: start: 20051110
  2. PREDNISONE [Concomitant]
     Dates: start: 20051007
  3. DIOVAN HCT [Concomitant]
     Dates: start: 20040701
  4. GABAPENTIN [Concomitant]
     Dates: start: 20040101

REACTIONS (1)
  - GASTROENTERITIS [None]
